FAERS Safety Report 6086211-0 (Version None)
Quarter: 2009Q1

REPORT INFORMATION
  Report Type: 
  Country: None (occurrence: None)
  Receive Date: 20090218
  Receipt Date: 20090218
  Transmission Date: 20090719
  Serious: Yes (Other)
  Sender: FDA-Public Use
  Company Number: None

PATIENT
  Age: 57 Year
  Sex: Male
  Weight: 172.3669 kg

DRUGS (11)
  1. LIPITOR [Suspect]
     Indication: BLOOD CHOLESTEROL ABNORMAL
     Dosage: 20MG  DAILY PO
     Route: 048
     Dates: start: 20040101, end: 20080210
  2. LIPITOR [Suspect]
     Indication: LIPIDS ABNORMAL
     Dosage: 20MG  DAILY PO
     Route: 048
     Dates: start: 20040101, end: 20080210
  3. CLONAZEPAM [Concomitant]
  4. HYZAAR [Concomitant]
  5. LEXAPRO [Concomitant]
  6. CELEBREX [Concomitant]
  7. AMLODIPINE BESYLATE [Concomitant]
  8. AVANDARYL [Concomitant]
  9. MINOXIDIL [Concomitant]
  10. JANUVIA [Concomitant]
  11. ZETIA [Concomitant]

REACTIONS (2)
  - ARTHRALGIA [None]
  - MYOPATHY [None]
